FAERS Safety Report 22398486 (Version 1)
Quarter: 2023Q2

REPORT INFORMATION
  Report Type: Report from Study
  Country: CA (occurrence: CA)
  Receive Date: 20230602
  Receipt Date: 20230602
  Transmission Date: 20230721
  Serious: Yes (Other)
  Sender: FDA-Public Use
  Company Number: CA-JNJFOC-20230249832

PATIENT
  Age: 52 Year
  Sex: Female

DRUGS (1)
  1. REMICADE [Suspect]
     Active Substance: INFLIXIMAB
     Indication: Colitis ulcerative
     Route: 042
     Dates: start: 20230125

REACTIONS (8)
  - Haemorrhage [Unknown]
  - Neoplasm malignant [Unknown]
  - Nail infection [Not Recovered/Not Resolved]
  - Urinary tract infection [Unknown]
  - Drug hypersensitivity [Unknown]
  - Limb injury [Unknown]
  - Eczema [Unknown]
  - Contusion [Unknown]

NARRATIVE: CASE EVENT DATE: 20230207
